FAERS Safety Report 25594745 (Version 2)
Quarter: 2025Q3

REPORT INFORMATION
  Report Type: Report from Study
  Country: CA (occurrence: CA)
  Receive Date: 20250723
  Receipt Date: 20250925
  Transmission Date: 20251020
  Serious: Yes (Other)
  Sender: ABBVIE
  Company Number: CA-ABBVIE-6377745

PATIENT
  Sex: Female
  Weight: 79 kg

DRUGS (1)
  1. SKYRIZI [Suspect]
     Active Substance: RISANKIZUMAB-RZAA
     Indication: Crohn^s disease
     Dosage: LAST SKYRIZI DOSE WAS JUL 2025.
     Route: 058

REACTIONS (15)
  - Retinal tear [Unknown]
  - Illness [Unknown]
  - Feeling abnormal [Unknown]
  - Abdominal pain [Unknown]
  - Diarrhoea [Unknown]
  - Cataract [Unknown]
  - Glaucoma [Unknown]
  - Arthralgia [Unknown]
  - Stomatitis [Unknown]
  - Impaired work ability [Unknown]
  - Social problem [Unknown]
  - Rash pruritic [Unknown]
  - Faecal calprotectin decreased [Unknown]
  - Drug ineffective [Unknown]
  - Rash papular [Unknown]
